FAERS Safety Report 7384799-0 (Version None)
Quarter: 2011Q1

REPORT INFORMATION
  Report Type: 
  Country: None (occurrence: None)
  Receive Date: 20110330
  Receipt Date: 20110323
  Transmission Date: 20110831
  Serious: Yes (Hospitalization, Other)
  Sender: FDA-Public Use
  Company Number: US-GENZYME-MOZO-1000467

PATIENT

DRUGS (4)
  1. NEUPOGEN [Suspect]
     Indication: MYELOID LEUKAEMIA
     Dosage: 10 MCG/KG, QD
     Route: 058
  2. SORAFENIB [Suspect]
     Indication: MYELOID LEUKAEMIA
     Dosage: 600 MG, BID
     Route: 048
  3. MOZOBIL [Suspect]
     Indication: MYELOID LEUKAEMIA
     Dosage: 240 MCG/KG, QD
     Route: 058
  4. HYDREA [Concomitant]
     Indication: PRODUCT USED FOR UNKNOWN INDICATION
     Route: 065

REACTIONS (3)
  - WHITE BLOOD CELL COUNT INCREASED [None]
  - PYREXIA [None]
  - HAEMOPTYSIS [None]
